FAERS Safety Report 8409875 (Version 2)
Quarter: 2012Q4

REPORT INFORMATION
  Report Type: 
  Country: BR (occurrence: BR)
  Receive Date: 20120216
  Receipt Date: 20121008
  Transmission Date: 20130627
  Serious: Yes (Hospitalization)
  Sender: FDA-Public Use
  Company Number: BR-ASTRAZENECA-2012SE09101

PATIENT
  Age: 73 Year
  Sex: Male
  Weight: 68 kg

DRUGS (1)
  1. BRILINTA [Suspect]
     Route: 048
     Dates: start: 201111

REACTIONS (1)
  - Infarction [Recovered/Resolved]
